FAERS Safety Report 15298561 (Version 1)
Quarter: 2018Q3

REPORT INFORMATION
  Report Type: Spontaneous
  Country: JP (occurrence: JP)
  Receive Date: 20180820
  Receipt Date: 20180820
  Transmission Date: 20181010
  Serious: Yes (Death, Life-Threatening, Other)
  Sender: FDA-Public Use
  Company Number: JP-MUNDIPHARMA DS AND PHARMACOVIGILANCE-GBR-2015-0030052

PATIENT
  Age: 85 Year
  Sex: Male

DRUGS (8)
  1. OXYCODONE HCL IR POWDER 0.5% [Suspect]
     Active Substance: OXYCODONE HYDROCHLORIDE
     Indication: CANCER PAIN
     Dosage: 10 MG, QID
     Route: 048
     Dates: start: 20141216, end: 20150409
  2. ENALAPRIL [Concomitant]
     Active Substance: ENALAPRIL
     Indication: BENIGN PROSTATIC HYPERPLASIA
     Dosage: 15 MG, DAILY
     Route: 048
     Dates: start: 20141216, end: 20150308
  3. FAMOTIDINE. [Concomitant]
     Active Substance: FAMOTIDINE
     Indication: GASTROINTESTINAL DISORDER
     Dosage: 20 MG, DAILY
     Route: 048
     Dates: start: 20141216, end: 20150317
  4. RISPERDAL [Suspect]
     Active Substance: RISPERIDONE
     Dosage: 1 MG, DAILY
     Route: 048
     Dates: start: 20150319
  5. GASMOTIN [Concomitant]
     Active Substance: MOSAPRIDE CITRATE
     Indication: GASTROINTESTINAL DISORDER
     Dosage: 15 MG, DAILY
     Dates: start: 20141216, end: 20150817
  6. FENTOS [Suspect]
     Active Substance: FENTANYL
     Indication: CANCER PAIN
     Dosage: 6 MG, DAILY
     Route: 062
     Dates: start: 20141216, end: 20150817
  7. RISPERDAL [Suspect]
     Active Substance: RISPERIDONE
     Indication: DELIRIUM
     Dosage: 2 MG, DAILY
     Route: 048
     Dates: start: 20150325, end: 20150409
  8. UBIRON [Concomitant]
     Indication: LIVER DISORDER
     Dosage: 300 MG, DAILY
     Route: 048
     Dates: start: 20141216, end: 20150318

REACTIONS (4)
  - Coma [Recovered/Resolved]
  - Hypopharyngeal cancer [Fatal]
  - Delirium [Recovered/Resolved]
  - Pneumonia aspiration [Recovered/Resolved]

NARRATIVE: CASE EVENT DATE: 20150319
